FAERS Safety Report 4679844-7 (Version None)
Quarter: 2005Q2

REPORT INFORMATION
  Report Type: 
  Country: None (occurrence: None)
  Receive Date: 20050602
  Receipt Date: 20050111
  Transmission Date: 20051028
  Serious: No
  Sender: FDA-Public Use
  Company Number: US-GLAXOSMITHKLINE-A0540320A

PATIENT
  Age: 17 Year
  Sex: Female

DRUGS (1)
  1. AUGMENTIN XR [Suspect]
     Indication: EAR INFECTION
     Route: 048
     Dates: start: 20041101

REACTIONS (3)
  - ABDOMINAL PAIN [None]
  - GASTROOESOPHAGEAL REFLUX DISEASE [None]
  - VOMITING [None]
